FAERS Safety Report 21372871 (Version 1)
Quarter: 2022Q3

REPORT INFORMATION
  Report Type: Report from Study
  Country: US (occurrence: US)
  Receive Date: 20220924
  Receipt Date: 20220924
  Transmission Date: 20221027
  Serious: Yes (Other)
  Sender: FDA-Public Use
  Company Number: US-ABBVIE-4129127

PATIENT
  Sex: Male

DRUGS (4)
  1. HUMIRA [Suspect]
     Active Substance: ADALIMUMAB
     Indication: Rheumatoid arthritis
     Route: 058
  2. Pfizer/BioNtech  Covid-19 vaccine [Concomitant]
     Indication: COVID-19 immunisation
     Dosage: 2ND DOSE. ONE IN ONCE.
     Route: 030
     Dates: start: 20210328, end: 20210328
  3. Pfizer/BioNtech  Covid-19 vaccine [Concomitant]
     Indication: COVID-19 immunisation
     Dosage: BOOSTER DOSE. ONE IN ONCE.
     Route: 030
     Dates: start: 20210929, end: 20210929
  4. Pfizer/BioNtech  Covid-19 vaccine [Concomitant]
     Indication: COVID-19 immunisation
     Dosage: 1ST DOSE. ONE IN ONCE.
     Route: 030
     Dates: start: 20210307, end: 20210307

REACTIONS (1)
  - Lung neoplasm malignant [Unknown]
